FAERS Safety Report 5034360-8 (Version None)
Quarter: 2006Q2

REPORT INFORMATION
  Report Type: 
  Country: None (occurrence: None)
  Receive Date: 20060626
  Receipt Date: 20060614
  Transmission Date: 20061013
  Serious: Yes (Other)
  Sender: FDA-Public Use
  Company Number: US-ROCHE-451849

PATIENT
  Sex: Female

DRUGS (3)
  1. ACCUTANE [Suspect]
     Route: 065
     Dates: start: 19941021, end: 19960621
  2. MERCAPTOPURINE [Concomitant]
  3. CLOMID [Concomitant]
     Indication: INFERTILITY

REACTIONS (2)
  - ABORTION SPONTANEOUS [None]
  - DRUG EXPOSURE DURING PREGNANCY [None]
